FAERS Safety Report 9690444 (Version 1)
Quarter: 2013Q4

REPORT INFORMATION
  Report Type: Spontaneous
  Country: FR (occurrence: FR)
  Receive Date: 20131115
  Receipt Date: 20131115
  Transmission Date: 20140711
  Serious: No
  Sender: FDA-Public Use
  Company Number: FR-UCBSA-102975

PATIENT
  Sex: Female

DRUGS (2)
  1. VIMPAT [Suspect]
  2. KEPPRA [Suspect]

REACTIONS (1)
  - Neutropenia [Unknown]
